FAERS Safety Report 20434590 (Version 1)
Quarter: 2022Q1

REPORT INFORMATION
  Report Type: Spontaneous
  Country: US (occurrence: US)
  Receive Date: 20220206
  Receipt Date: 20220206
  Transmission Date: 20220423
  Serious: Yes (Death, Life-Threatening, Hospitalization, Other)
  Sender: FDA-Public Use
  Company Number: US-NOVARTISPH-NVSC2022US024087

PATIENT
  Age: 88 Year
  Sex: Male

DRUGS (1)
  1. EXELON [Suspect]
     Active Substance: RIVASTIGMINE TARTRATE
     Indication: Cognitive disorder
     Dosage: 4.6 MG, QD
     Route: 062
     Dates: start: 20220107, end: 20220114

REACTIONS (6)
  - Urinary tract infection [Fatal]
  - Bradycardia [Fatal]
  - Urinary retention [Fatal]
  - Sepsis [Fatal]
  - Pyrexia [Fatal]
  - Cardiac arrest [Fatal]

NARRATIVE: CASE EVENT DATE: 20220114
